FAERS Safety Report 6882609-9 (Version None)
Quarter: 2010Q3

REPORT INFORMATION
  Report Type: 
  Country: None (occurrence: None)
  Receive Date: 20100729
  Receipt Date: 20100720
  Transmission Date: 20110219
  Serious: Yes (Hospitalization)
  Sender: FDA-Public Use
  Company Number: AU-ROCHE-698841

PATIENT
  Sex: Female

DRUGS (2)
  1. AVASTIN [Suspect]
     Indication: COLORECTAL CANCER
     Dosage: FREQUENCY REPORTED AS 4 DOSES
     Route: 042
     Dates: start: 20100222, end: 20100423
  2. XELODA [Suspect]
     Indication: COLORECTAL CANCER
     Dosage: 14 DAYS ON , 7 DAYS OFF.
     Route: 048
     Dates: start: 20100216

REACTIONS (1)
  - CARDIOVASCULAR DISORDER [None]
